FAERS Safety Report 18691043 (Version 1)
Quarter: 2021Q1

REPORT INFORMATION
  Report Type: Spontaneous
  Country: TR (occurrence: TR)
  Receive Date: 20210101
  Receipt Date: 20210101
  Transmission Date: 20210419
  Serious: Yes (Other)
  Sender: FDA-Public Use
  Company Number: NVSC2020TR343219

PATIENT
  Age: 51 Year
  Sex: Male

DRUGS (1)
  1. TRILEPTAL [Suspect]
     Active Substance: OXCARBAZEPINE
     Indication: EPILEPSY
     Dosage: 1 DF, TID
     Route: 065

REACTIONS (4)
  - Seizure [Unknown]
  - Epilepsy [Unknown]
  - Product dose omission issue [Unknown]
  - Product availability issue [Unknown]
